FAERS Safety Report 6900193-8 (Version None)
Quarter: 2010Q3

REPORT INFORMATION
  Report Type: 
  Country: None (occurrence: None)
  Receive Date: 20100803
  Receipt Date: 20100721
  Transmission Date: 20110219
  Serious: Yes (Other)
  Sender: FDA-Public Use
  Company Number: US-ELI_LILLY_AND_COMPANY-US201007005324

PATIENT
  Sex: Female

DRUGS (1)
  1. SYMBYAX [Suspect]
     Dosage: UNK, UNKNOWN
     Route: 065
     Dates: start: 20100714, end: 20100701

REACTIONS (2)
  - HEPATIC CIRRHOSIS [None]
  - HEPATIC STEATOSIS [None]
